FAERS Safety Report 5757892-3 (Version None)
Quarter: 2008Q2

REPORT INFORMATION
  Report Type: 
  Country: None (occurrence: None)
  Receive Date: 20080602
  Receipt Date: 20080602
  Transmission Date: 20081010
  Serious: No
  Sender: FDA-Public Use
  Company Number: None

PATIENT
  Sex: Male
  Weight: 70.3075 kg

DRUGS (4)
  1. PANTOPRAZOLE SODIUM DELAYED-RELEASE TABLETS, 40MG [Suspect]
     Indication: GASTROOESOPHAGEAL REFLUX DISEASE
     Dosage: 1 TABLET IN AM
     Dates: start: 20080327, end: 20080506
  2. MELOXICAM [Concomitant]
  3. ATENOLOL [Concomitant]
  4. ELMIRON [Concomitant]

REACTIONS (2)
  - DIARRHOEA [None]
  - PHARMACEUTICAL PRODUCT COMPLAINT [None]
